FAERS Safety Report 18708298 (Version 1)
Quarter: 2021Q1

REPORT INFORMATION
  Report Type: Spontaneous
  Country: US (occurrence: US)
  Receive Date: 20210106
  Receipt Date: 20210106
  Transmission Date: 20210419
  Serious: Yes (Hospitalization, Other)
  Sender: FDA-Public Use
  Company Number: US-INDIVIOR US-INDV-127566-2020

PATIENT
  Sex: Female

DRUGS (1)
  1. SUBLOCADE [Suspect]
     Active Substance: BUPRENORPHINE
     Indication: PRODUCT USED FOR UNKNOWN INDICATION
     Dosage: UNK, QMO
     Route: 065

REACTIONS (5)
  - Clostridium difficile infection [Unknown]
  - Injection site extravasation [Not Recovered/Not Resolved]
  - Injection site pain [Unknown]
  - Staphylococcal infection [Unknown]
  - Injection site cellulitis [Unknown]

NARRATIVE: CASE EVENT DATE: 2020
